FAERS Safety Report 5114556-7 (Version None)
Quarter: 2006Q3

REPORT INFORMATION
  Report Type: 
  Country: None (occurrence: None)
  Receive Date: 20060926
  Receipt Date: 20060912
  Transmission Date: 20061208
  Serious: Yes (Disabling)
  Sender: FDA-Public Use
  Company Number: PHBS2006TR14038

PATIENT
  Age: 74 Year
  Sex: Female

DRUGS (3)
  1. ZOMETA [Suspect]
     Indication: METASTASES TO BONE
     Dosage: 4 MG, EVERY 21 DAYS
     Route: 042
     Dates: start: 20021004, end: 20041004
  2. CHEMOTHERAPEUTICS,OTHER [Concomitant]
     Route: 065
  3. AREDIA [Suspect]
     Indication: HYPERCALCAEMIA OF MALIGNANCY

REACTIONS (8)
  - OEDEMA [None]
  - OSTEOMYELITIS CHRONIC [None]
  - OSTEONECROSIS [None]
  - PLASMA CELL DISORDER [None]
  - RADIATION INJURY [None]
  - TOOTH EXTRACTION [None]
  - WOUND DEBRIDEMENT [None]
  - WOUND DRAINAGE [None]
